FAERS Safety Report 6538247-0 (Version None)
Quarter: 2010Q1

REPORT INFORMATION
  Report Type: 
  Country: None (occurrence: None)
  Receive Date: 20100112
  Receipt Date: 20100112
  Transmission Date: 20100710
  Serious: Yes (Other)
  Sender: FDA-Public Use
  Company Number: None

PATIENT
  Age: 57 Year
  Sex: Female
  Weight: 86.1834 kg

DRUGS (1)
  1. ACTONEL [Suspect]
     Indication: OSTEOPOROSIS
     Dosage: ONE TABLET ONE/MONTH PO
     Route: 048
     Dates: start: 20091213, end: 20091213

REACTIONS (3)
  - ABASIA [None]
  - BONE PAIN [None]
  - WALKING AID USER [None]
